FAERS Safety Report 11514157 (Version 1)
Quarter: 2015Q3

REPORT INFORMATION
  Report Type: Spontaneous
  Country: US (occurrence: US)
  Receive Date: 20150903
  Receipt Date: 20150903
  Transmission Date: 20151125
  Serious: No
  Sender: FDA-Public Use
  Company Number: US-ELI_LILLY_AND_COMPANY-US201208000235

PATIENT
  Age: 73 Year
  Sex: Female

DRUGS (7)
  1. CYMBALTA [Suspect]
     Active Substance: DULOXETINE HYDROCHLORIDE
     Dosage: 30 MG, UNK
     Dates: start: 20120716, end: 20120728
  2. CYMBALTA [Suspect]
     Active Substance: DULOXETINE HYDROCHLORIDE
     Dosage: 30 MG, QD
     Dates: end: 20120929
  3. LORTAB [Concomitant]
     Active Substance: ACETAMINOPHEN\HYDROCODONE BITARTRATE
  4. CYMBALTA [Suspect]
     Active Substance: DULOXETINE HYDROCHLORIDE
     Dosage: 60 MG, QD
  5. XANAX [Concomitant]
     Active Substance: ALPRAZOLAM
  6. LISINOPRIL. [Concomitant]
     Active Substance: LISINOPRIL
  7. CYMBALTA [Suspect]
     Active Substance: DULOXETINE HYDROCHLORIDE
     Indication: FIBROMYALGIA
     Dosage: 60 MG, QD
     Dates: start: 201101, end: 201207

REACTIONS (8)
  - Drug ineffective [Unknown]
  - Drug withdrawal syndrome [Unknown]
  - Back pain [Not Recovered/Not Resolved]
  - Dyspnoea [Unknown]
  - Malaise [Unknown]
  - Pain [Not Recovered/Not Resolved]
  - Yawning [Unknown]
  - Dizziness [Not Recovered/Not Resolved]

NARRATIVE: CASE EVENT DATE: 20120716
